FAERS Safety Report 5614731-9 (Version None)
Quarter: 2008Q1

REPORT INFORMATION
  Report Type: 
  Country: None (occurrence: None)
  Receive Date: 20080201
  Receipt Date: 20080117
  Transmission Date: 20080703
  Serious: Yes (Hospitalization)
  Sender: FDA-Public Use
  Company Number: SPV1-2007-02931

PATIENT
  Age: 17 Year
  Sex: Male
  Weight: 59 kg

DRUGS (2)
  1. LIALDA [Suspect]
     Indication: COLITIS ULCERATIVE
     Dosage: 1.2 GX/DAY:BID, ORAL
     Route: 048
     Dates: start: 20070412, end: 20070415
  2. NEXIUM [Concomitant]

REACTIONS (2)
  - PANCREATITIS ACUTE [None]
  - PANIC ATTACK [None]
